FAERS Safety Report 9606249 (Version 1)
Quarter: 2013Q4

REPORT INFORMATION
  Report Type: Spontaneous
  Country: US (occurrence: US)
  Receive Date: 20131008
  Receipt Date: 20131008
  Transmission Date: 20140711
  Serious: No
  Sender: FDA-Public Use
  Company Number: US-AMGEN-USASP2013046885

PATIENT
  Age: 65 Year
  Sex: Female

DRUGS (5)
  1. PROLIA [Suspect]
     Indication: OSTEOPOROSIS POSTMENOPAUSAL
     Dosage: UNK
  2. L METHYLFOLATE [Concomitant]
  3. COSAMINE [Concomitant]
  4. OSTEO BI-FLEX [Concomitant]
  5. NIACIN [Concomitant]

REACTIONS (6)
  - Spinal pain [Unknown]
  - Joint crepitation [Unknown]
  - Muscle spasms [Unknown]
  - Arthralgia [Unknown]
  - Musculoskeletal pain [Unknown]
  - Back pain [Unknown]
